FAERS Safety Report 4560039-2 (Version None)
Quarter: 2005Q1

REPORT INFORMATION
  Report Type: 
  Country: None (occurrence: None)
  Receive Date: 20050125
  Receipt Date: 20050113
  Transmission Date: 20050727
  Serious: Yes (Hospitalization)
  Sender: FDA-Public Use
  Company Number: US-JNJFOC-20050103613

PATIENT
  Sex: Female

DRUGS (12)
  1. INFLIXIMAB [Suspect]
     Indication: RHEUMATOID ARTHRITIS
     Route: 042
  2. CELEBREX [Concomitant]
  3. DARVOCET-N 100 [Concomitant]
  4. DARVOCET-N 100 [Concomitant]
  5. FOSAMAX [Concomitant]
  6. METAMUCIL-2 [Concomitant]
  7. MS CONTIN [Concomitant]
  8. PREDNISONE [Concomitant]
  9. PREVACID [Concomitant]
  10. ZOLOFT [Concomitant]
  11. FORTEO INJECTIONS [Concomitant]
  12. NEXIUM [Concomitant]

REACTIONS (1)
  - EOSINOPHILIC PNEUMONIA [None]
